FAERS Safety Report 8183892-2 (Version None)
Quarter: 2012Q1

REPORT INFORMATION
  Report Type: 
  Country: None (occurrence: None)
  Receive Date: 20120305
  Receipt Date: 20120301
  Transmission Date: 20120608
  Serious: Yes (Other)
  Sender: FDA-Public Use
  Company Number: AU-PFIZER INC-2012055822

PATIENT
  Sex: Male

DRUGS (1)
  1. LIPITOR [Suspect]
     Indication: BLOOD CHOLESTEROL
     Dosage: UNK
     Route: 048

REACTIONS (4)
  - CARDIAC FIBRILLATION [None]
  - ANGIOPATHY [None]
  - CORONARY ARTERY DISEASE [None]
  - DIABETES MELLITUS [None]
